FAERS Safety Report 14904013 (Version 1)
Quarter: 2018Q2

REPORT INFORMATION
  Report Type: Spontaneous
  Country: US (occurrence: US)
  Receive Date: 20180516
  Receipt Date: 20180516
  Transmission Date: 20180711
  Serious: No
  Sender: FDA-Public Use
  Company Number: US-COLLEGIUM PHARMACEUTICAL, INC.-2018CGM00073

PATIENT
  Sex: Female

DRUGS (1)
  1. XTAMPZA ER [Suspect]
     Active Substance: OXYCODONE
     Dosage: 9 MG, 2X/DAY

REACTIONS (1)
  - Drug ineffective [Not Recovered/Not Resolved]
